FAERS Safety Report 6748712-9 (Version None)
Quarter: 2010Q2

REPORT INFORMATION
  Report Type: 
  Country: None (occurrence: None)
  Receive Date: 20100601
  Receipt Date: 20100524
  Transmission Date: 20101027
  Serious: Yes (Death)
  Sender: FDA-Public Use
  Company Number: ES-CELGENEUS-144-50794-10051956

PATIENT

DRUGS (5)
  1. VIDAZA [Suspect]
     Route: 050
     Dates: start: 20100111
  2. NEO RECORMON [Concomitant]
     Indication: DRUG USE FOR UNKNOWN INDICATION
     Route: 065
     Dates: start: 20091015, end: 20100101
  3. ARANESP [Concomitant]
     Indication: DRUG USE FOR UNKNOWN INDICATION
     Route: 065
  4. RED BLOOD CELLS [Concomitant]
     Indication: DRUG USE FOR UNKNOWN INDICATION
     Dosage: 2 PACKS PER MONTH
     Route: 051
  5. RED BLOOD CELLS [Concomitant]
     Dosage: 4 PACKS PER MONTH
     Route: 051
     Dates: start: 20100101

REACTIONS (1)
  - DEATH [None]
